FAERS Safety Report 14634908 (Version 1)
Quarter: 2018Q1

REPORT INFORMATION
  Report Type: Report from Study
  Country: US (occurrence: US)
  Receive Date: 20180314
  Receipt Date: 20180314
  Transmission Date: 20180509
  Serious: Yes (Other)
  Sender: FDA-Public Use
  Company Number: US-TAIHO ONCOLOGY INC-EU-2018-00360

PATIENT
  Age: 57 Year
  Sex: Male
  Weight: 109.87 kg

DRUGS (14)
  1. HYDROMORPHONE [Concomitant]
     Active Substance: HYDROMORPHONE
     Indication: PAIN
     Dosage: NI
  2. OXYCONTIN [Concomitant]
     Active Substance: OXYCODONE HYDROCHLORIDE
     Indication: BREAKTHROUGH PAIN
  3. BUSPIRONE [Concomitant]
     Active Substance: BUSPIRONE HYDROCHLORIDE
  4. ONDANSETRON [Concomitant]
     Active Substance: ONDANSETRON
  5. LONSURF [Suspect]
     Active Substance: TIPIRACIL HYDROCHLORIDE\TRIFLURIDINE
     Indication: RECTAL CANCER METASTATIC
     Dosage: CURRENT CYCLE 2
     Route: 048
     Dates: start: 20180105
  6. PROCHLORPERAZINE. [Concomitant]
     Active Substance: PROCHLORPERAZINE
  7. SULFAMETHOXAZOLE [Concomitant]
     Active Substance: SULFAMETHOXAZOLE
     Dosage: NI
  8. CITALOPRAM [Concomitant]
     Active Substance: CITALOPRAM HYDROBROMIDE
  9. POTASSIUM [Concomitant]
     Active Substance: POTASSIUM
  10. ALLOPURINOL. [Concomitant]
     Active Substance: ALLOPURINOL
     Dosage: NI
  11. ROPINIROLE. [Concomitant]
     Active Substance: ROPINIROLE
  12. ATORVASTATIN [Concomitant]
     Active Substance: ATORVASTATIN
  13. OXYCONTIN [Concomitant]
     Active Substance: OXYCODONE HYDROCHLORIDE
     Dosage: UP TO 6 PER DAY
  14. NAPROXEN. [Concomitant]
     Active Substance: NAPROXEN

REACTIONS (11)
  - Vomiting [Unknown]
  - Urinary retention [Unknown]
  - Chills [Unknown]
  - Constipation [Unknown]
  - Cytopenia [Recovered/Resolved]
  - Stoma site erythema [Unknown]
  - Kidney infection [Unknown]
  - Urostomy complication [Unknown]
  - Dehydration [Not Recovered/Not Resolved]
  - Hyperhidrosis [Unknown]
  - Nausea [Unknown]

NARRATIVE: CASE EVENT DATE: 201802
